FAERS Safety Report 9512265 (Version 2)
Quarter: 2013Q4

REPORT INFORMATION
  Report Type: Spontaneous
  Country: US (occurrence: US)
  Receive Date: 20130910
  Receipt Date: 20131007
  Transmission Date: 20140711
  Serious: No
  Sender: FDA-Public Use
  Company Number: US-TEVA-431116USA

PATIENT
  Age: 40 Year
  Sex: Female
  Weight: 92.62 kg

DRUGS (1)
  1. PARAGARD 380A [Suspect]
     Route: 015
     Dates: start: 20130904, end: 20130904

REACTIONS (2)
  - Vomiting [Recovered/Resolved]
  - Abdominal pain [Recovered/Resolved]
